FAERS Safety Report 18155080 (Version 2)
Quarter: 2020Q4

REPORT INFORMATION
  Report Type: Spontaneous
  Country: US (occurrence: US)
  Receive Date: 20200817
  Receipt Date: 20201015
  Transmission Date: 20210113
  Serious: Yes (Hospitalization, Other)
  Sender: FDA-Public Use
  Company Number: US-DRREDDYS-USA/USA/20/0125946

PATIENT
  Age: 23 Year
  Sex: Male

DRUGS (3)
  1. RISPERIDONE. [Suspect]
     Active Substance: RISPERIDONE
     Dosage: ON DAY 1
  2. RISPERIDONE. [Suspect]
     Active Substance: RISPERIDONE
     Dosage: BY DAY 8
  3. RISPERIDONE. [Suspect]
     Active Substance: RISPERIDONE
     Indication: SCHIZOPHRENIA
     Dosage: SLOW DOSE TITRATION

REACTIONS (1)
  - Drug-induced liver injury [Recovered/Resolved]
